FAERS Safety Report 15642369 (Version 1)
Quarter: 2018Q4

REPORT INFORMATION
  Report Type: Spontaneous
  Country: US (occurrence: US)
  Receive Date: 20181114
  Receipt Date: 20181114
  Transmission Date: 20190205
  Serious: Yes (Hospitalization)
  Sender: FDA-Public Use
  Company Number: None

PATIENT
  Age: 63 Year
  Sex: Female

DRUGS (41)
  1. FORTEO [Suspect]
     Active Substance: TERIPARATIDE
     Indication: SENILE OSTEOPOROSIS
     Dosage: ?          OTHER STRENGTH:600MCG/2.4ML;OTHER FREQUENCY:AD;?
     Route: 058
     Dates: start: 201608
  2. CHERATUSSIN [Suspect]
     Active Substance: AMMONIUM CHLORIDE\DEXTROMETHORPHAN\SODIUM CITRATE
  3. LISINOPRIL. [Concomitant]
     Active Substance: LISINOPRIL
  4. ONDANSETRON [Concomitant]
     Active Substance: ONDANSETRON
  5. HALFLYTELY [Concomitant]
     Active Substance: POLYETHYLENE GLYCOL 3350\POTASSIUM CHLORIDE\SODIUM BICARBONATE\SODIUM CHLORIDE
  6. ERY-TAB [Suspect]
     Active Substance: ERYTHROMYCIN
  7. CLINDAMYCIN. [Concomitant]
     Active Substance: CLINDAMYCIN
  8. WARFARIN [Concomitant]
     Active Substance: WARFARIN
  9. PROMETHAZINE [Suspect]
     Active Substance: PROMETHAZINE\PROMETHAZINE HYDROCHLORIDE
  10. LEVOTHYROXIN [Concomitant]
     Active Substance: LEVOTHYROXINE
  11. DILTIAZEM. [Concomitant]
     Active Substance: DILTIAZEM
  12. JANUMET [Concomitant]
     Active Substance: METFORMIN HYDROCHLORIDE\SITAGLIPTIN PHOSPHATE
  13. AZITHROMYCIN ANHYDROUS. [Concomitant]
     Active Substance: AZITHROMYCIN ANHYDROUS
  14. HYOSCYAMINE. [Concomitant]
     Active Substance: HYOSCYAMINE
  15. DOCQLACE [Concomitant]
     Active Substance: DOCUSATE SODIUM
  16. DIPHENATROP [Concomitant]
  17. POT CL MICRO TAB [Concomitant]
  18. PRAMPEXOLE [Concomitant]
  19. CARTIA XT [Concomitant]
     Active Substance: DILTIAZEM HYDROCHLORIDE
  20. SIMVASTATIN. [Concomitant]
     Active Substance: SIMVASTATIN
  21. PREDNISONE. [Concomitant]
     Active Substance: PREDNISONE
  22. HYDROCO/APAP [Concomitant]
     Active Substance: ACETAMINOPHEN\HYDROCODONE
  23. POLYMYXIN EN SOL TRMETHP [Concomitant]
  24. TRIAMCINOLON OIN [Concomitant]
  25. OMEPRAZOLE. [Concomitant]
     Active Substance: OMEPRAZOLE
  26. BREO ELIPTA INH [Concomitant]
  27. FUROSEMIDE. [Concomitant]
     Active Substance: FUROSEMIDE
  28. RANITIDINE. [Concomitant]
     Active Substance: RANITIDINE
  29. MOMETASONE SPR [Concomitant]
  30. LEVOTHYROXIN TAB [Concomitant]
  31. CRESTOR [Concomitant]
     Active Substance: ROSUVASTATIN CALCIUM
  32. CHLORDIAZEP [Concomitant]
  33. APAPCODENE SOL [Concomitant]
  34. ONDANSETRON [Concomitant]
     Active Substance: ONDANSETRON
  35. CYCLOBENZAPR [Concomitant]
     Active Substance: CYCLOBENZAPRINE
  36. SYMBICORT [Concomitant]
     Active Substance: BUDESONIDE\FORMOTEROL FUMARATE DIHYDRATE
  37. PROAIR HFA [Concomitant]
     Active Substance: ALBUTEROL SULFATE
  38. DILTIAZEM. [Concomitant]
     Active Substance: DILTIAZEM
  39. METHYLPRED [Concomitant]
     Active Substance: METHYLPREDNISOLONE
  40. ONDANSETRON [Concomitant]
     Active Substance: ONDANSETRON
  41. VITAMIN D [Concomitant]
     Active Substance: CHOLECALCIFEROL

REACTIONS (2)
  - Therapy cessation [None]
  - Condition aggravated [None]

NARRATIVE: CASE EVENT DATE: 20181016
